FAERS Safety Report 4473065-9 (Version None)
Quarter: 2004Q4

REPORT INFORMATION
  Report Type: 
  Country: None (occurrence: None)
  Receive Date: 20041013
  Receipt Date: 20040928
  Transmission Date: 20050328
  Serious: Yes (Hospitalization, Other)
  Sender: FDA-Public Use
  Company Number: ZA-GLAXOSMITHKLINE-B0346881A

PATIENT
  Age: 15 Year
  Sex: Female
  Weight: 55 kg

DRUGS (1)
  1. LAMICTIN [Suspect]
     Indication: EPILEPSY
     Route: 048
     Dates: start: 20020101

REACTIONS (5)
  - C-REACTIVE PROTEIN INCREASED [None]
  - DRUG EFFECT DECREASED [None]
  - FATIGUE [None]
  - PYREXIA [None]
  - WHITE BLOOD CELL COUNT INCREASED [None]
